FAERS Safety Report 8097600-7 (Version None)
Quarter: 2012Q1

REPORT INFORMATION
  Report Type: 
  Country: None (occurrence: None)
  Receive Date: 20120128
  Receipt Date: 20110620
  Transmission Date: 20120608
  Serious: No
  Sender: FDA-Public Use
  Company Number: US-ABBOTT-11P-163-0733960-00

PATIENT
  Age: 35 Year
  Sex: Male

DRUGS (3)
  1. HUMIRA [Suspect]
     Dates: start: 20110601
  2. HUMIRA [Suspect]
     Dates: start: 20110101, end: 20110501
  3. HUMIRA [Suspect]
     Indication: PSORIASIS
     Dates: start: 20080501

REACTIONS (4)
  - PSORIASIS [None]
  - STRESS [None]
  - ANXIETY [None]
  - INAPPROPRIATE SCHEDULE OF DRUG ADMINISTRATION [None]
